FAERS Safety Report 9768057 (Version 1)
Quarter: 2013Q4

REPORT INFORMATION
  Report Type: Spontaneous
  Country: IT (occurrence: US)
  Receive Date: 20131217
  Receipt Date: 20131217
  Transmission Date: 20140711
  Serious: Yes (Death, Other)
  Sender: FDA-Public Use
  Company Number: IT-CUBIST PHARMACEUTICAL, INC.-2013CBST001314

PATIENT
  Sex: 0

DRUGS (12)
  1. CUBICIN [Suspect]
     Indication: PSEUDOMONAL SEPSIS
     Dosage: 700 MG, Q24H
     Route: 065
  2. CUBICIN [Suspect]
     Indication: OFF LABEL USE
  3. AMIKACIN [Concomitant]
     Indication: PROPHYLAXIS AGAINST TRANSPLANT REJECTION
     Dosage: UNK UNK, UNK
     Route: 065
  4. MEROPENEM [Concomitant]
     Indication: PROPHYLAXIS AGAINST TRANSPLANT REJECTION
     Dosage: UNK UNK, UNK
     Route: 065
  5. CYCLOPHOSPHAMIDE [Concomitant]
     Indication: PROPHYLAXIS AGAINST TRANSPLANT REJECTION
     Dosage: UNK UNK, UNK
     Route: 065
  6. MYCOPHENOLATE [Concomitant]
     Indication: PROPHYLAXIS AGAINST TRANSPLANT REJECTION
     Dosage: UNK UNK, UNK
     Route: 065
  7. CYCLOSPORINE [Concomitant]
     Indication: PROPHYLAXIS AGAINST TRANSPLANT REJECTION
     Dosage: UNK UNK, UNK
     Route: 065
  8. TIGECYCLINE [Concomitant]
     Indication: PROPHYLAXIS AGAINST TRANSPLANT REJECTION
     Dosage: 200 MG, QD
     Route: 065
  9. TIGECYCLINE [Concomitant]
     Dosage: 200 MG, LOADING DOSE
     Route: 065
  10. COLISTIN [Concomitant]
     Indication: PROPHYLAXIS AGAINST TRANSPLANT REJECTION
     Dosage: 9 000 000 IU, QD (EVERY 12 HOURS)
  11. COLISTIN [Concomitant]
     Dosage: 9 000 000 IU, QD (LOADING DOSE)
  12. RIFAMPICIN [Concomitant]
     Indication: PROPHYLAXIS AGAINST TRANSPLANT REJECTION
     Dosage: 600 MG, Q24H
     Route: 065

REACTIONS (2)
  - Septic shock [Fatal]
  - Aplasia [Not Recovered/Not Resolved]
